FAERS Safety Report 17446400 (Version 1)
Quarter: 2020Q1

REPORT INFORMATION
  Report Type: Report from Study
  Country: IL (occurrence: IL)
  Receive Date: 20200221
  Receipt Date: 20200221
  Transmission Date: 20200409
  Serious: Yes (Other)
  Sender: FDA-Public Use
  Company Number: IL-ACTELION-A-CH2020-201767

PATIENT
  Age: 61 Year
  Sex: Female

DRUGS (6)
  1. SALAGEN [Concomitant]
     Active Substance: PILOCARPINE HYDROCHLORIDE
  2. VITAMIN D [Concomitant]
     Active Substance: VITAMIN D NOS
  3. FERRIFOL [Concomitant]
  4. REVATIO [Concomitant]
     Active Substance: SILDENAFIL CITRATE
  5. OPSUMIT [Suspect]
     Active Substance: MACITENTAN
     Indication: PULMONARY ARTERIAL HYPERTENSION
     Dosage: 10 MG, QD
     Route: 048
     Dates: start: 20171213
  6. FOSAVANCE [Concomitant]
     Active Substance: ALENDRONATE SODIUM\CHOLECALCIFEROL

REACTIONS (1)
  - Catheterisation cardiac [Recovered/Resolved]

NARRATIVE: CASE EVENT DATE: 20200202
